FAERS Safety Report 4289742-9 (Version None)
Quarter: 2004Q1

REPORT INFORMATION
  Report Type: 
  Country: None (occurrence: None)
  Receive Date: 20040206
  Receipt Date: 20040123
  Transmission Date: 20041129
  Serious: Yes (Other)
  Sender: FDA-Public Use
  Company Number: 200401550

PATIENT
  Sex: Male

DRUGS (1)
  1. PEPCID AC TABLETS (FAMOTIDINE ) [Suspect]
     Dosage: 10 MG BID PO
     Dates: start: 20040120, end: 20040120

REACTIONS (1)
  - STEVENS-JOHNSON SYNDROME [None]
